FAERS Safety Report 6730056-2 (Version None)
Quarter: 2010Q2

REPORT INFORMATION
  Report Type: 
  Country: None (occurrence: None)
  Receive Date: 20100513
  Receipt Date: 20100428
  Transmission Date: 20101027
  Serious: Yes (Hospitalization)
  Sender: FDA-Public Use
  Company Number: 2010AP000794

PATIENT
  Age: 9 Year
  Sex: Female

DRUGS (13)
  1. MIDAZOLAM HCL [Suspect]
     Indication: STATUS EPILEPTICUS
     Dosage: 15 UG/KG; IV, 200 UG/KG; IV
     Route: 042
  2. OXCARBAZEPINE [Concomitant]
  3. FOSPHENYTOIN [Concomitant]
  4. PHENOBARBITAL [Concomitant]
  5. PHENYLEPHRINE [Concomitant]
  6. DOPAMINE HYDROCHLORIDE [Concomitant]
  7. EPINEPHRINE [Concomitant]
  8. VALPROIC ACID [Concomitant]
  9. PHENYTOIN [Concomitant]
  10. LEVETIRACETAM [Concomitant]
  11. LAMOTRIGINE [Concomitant]
  12. TOPIRAMATE [Concomitant]
  13. PREGABALIN [Concomitant]

REACTIONS (3)
  - ACIDOSIS HYPERCHLORAEMIC [None]
  - CONVULSION [None]
  - METABOLIC ACIDOSIS [None]
